FAERS Safety Report 9636164 (Version 1)
Quarter: 2013Q4

REPORT INFORMATION
  Report Type: Report from Study
  Country: US (occurrence: US)
  Receive Date: 20131021
  Receipt Date: 20131021
  Transmission Date: 20140711
  Serious: Yes (Other)
  Sender: FDA-Public Use
  Company Number: US-US-EMD SERONO, INC.-7244072

PATIENT
  Sex: Male

DRUGS (3)
  1. REBIF [Suspect]
     Indication: MULTIPLE SCLEROSIS
     Route: 058
     Dates: start: 20030128
  2. CARBATROL [Concomitant]
     Indication: TRIGEMINAL NEURALGIA
  3. HYDROCODONE [Concomitant]
     Indication: PAIN

REACTIONS (10)
  - Diabetes mellitus [Unknown]
  - Cognitive disorder [Unknown]
  - Crying [Recovering/Resolving]
  - Intervertebral disc protrusion [Not Recovered/Not Resolved]
  - Weight decreased [Recovered/Resolved]
  - Burning sensation [Not Recovered/Not Resolved]
  - Hypokinesia [Not Recovered/Not Resolved]
  - Pain in extremity [Not Recovered/Not Resolved]
  - Multiple sclerosis relapse [Not Recovered/Not Resolved]
  - Injection site bruising [Not Recovered/Not Resolved]
